FAERS Safety Report 11771215 (Version 4)
Quarter: 2016Q2

REPORT INFORMATION
  Report Type: Spontaneous
  Country: GB (occurrence: GB)
  Receive Date: 20151124
  Receipt Date: 20160628
  Transmission Date: 20160815
  Serious: Yes (Disabling, Other)
  Sender: FDA-Public Use
  Company Number: GB-ROCHE-1664595

PATIENT
  Age: 45 Year
  Sex: Female
  Weight: 66.06 kg

DRUGS (8)
  1. CALCICHEW D3 [Concomitant]
     Active Substance: CALCIUM\CHOLECALCIFEROL
     Route: 065
  2. ALVESCO [Concomitant]
     Active Substance: CICLESONIDE
     Route: 065
  3. FISH OIL [Concomitant]
     Active Substance: FISH OIL
  4. XOLAIR [Suspect]
     Active Substance: OMALIZUMAB
     Indication: BLOOD IMMUNOGLOBULIN E INCREASED
     Route: 065
     Dates: start: 20140802, end: 20150929
  5. DESLORATADINE. [Concomitant]
     Active Substance: DESLORATADINE
     Route: 065
  6. SEEBRI [Concomitant]
     Active Substance: GLYCOPYRRONIUM
     Route: 065
  7. ALENDRONIC ACID [Concomitant]
     Active Substance: ALENDRONIC ACID
  8. SERETIDE [Concomitant]
     Active Substance: FLUTICASONE PROPIONATE\SALMETEROL XINAFOATE
     Route: 065

REACTIONS (8)
  - Bronchiectasis [Not Recovered/Not Resolved]
  - Asthma [Recovered/Resolved]
  - Arthralgia [Recovered/Resolved]
  - Colitis [Recovered/Resolved]
  - Pain in extremity [Recovered/Resolved]
  - Flushing [Recovered/Resolved]
  - Off label use [Unknown]
  - Pelvic mass [Recovered/Resolved]

NARRATIVE: CASE EVENT DATE: 20150901
